FAERS Safety Report 18218616 (Version 8)
Quarter: 2021Q1

REPORT INFORMATION
  Report Type: Spontaneous
  Country: US (occurrence: US)
  Receive Date: 20200901
  Receipt Date: 20210115
  Transmission Date: 20210419
  Serious: Yes (Other)
  Sender: FDA-Public Use
  Company Number: US-PFIZER INC-2019524430

PATIENT
  Age: 82 Year
  Sex: Female
  Weight: 68.04 kg

DRUGS (1)
  1. ARTHROTEC [Suspect]
     Active Substance: DICLOFENAC SODIUM\MISOPROSTOL
     Dosage: 1 DF, DAILY(75 MG/200 MCG)
     Route: 048

REACTIONS (3)
  - Diabetes mellitus [Unknown]
  - Blindness [Unknown]
  - Macular degeneration [Unknown]
